FAERS Safety Report 20616538 (Version 1)
Quarter: 2022Q1

REPORT INFORMATION
  Report Type: Spontaneous
  Country: US (occurrence: US)
  Receive Date: 20220321
  Receipt Date: 20220321
  Transmission Date: 20220423
  Serious: No
  Sender: FDA-Public Use
  Company Number: US-GILEAD-2022-0573985

PATIENT
  Sex: Male

DRUGS (12)
  1. EPCLUSA [Suspect]
     Active Substance: SOFOSBUVIR\VELPATASVIR
     Indication: Chronic hepatitis C
     Dosage: 1 DOSAGE FORM, QD
     Route: 048
     Dates: start: 20220228
  2. ESOMEPRAZOLE MAGNESIUM [Concomitant]
     Active Substance: ESOMEPRAZOLE MAGNESIUM
  3. ACETAMINOPHEN\HYDROCODONE [Concomitant]
     Active Substance: ACETAMINOPHEN\HYDROCODONE
  4. IBUPROFEN [Concomitant]
     Active Substance: IBUPROFEN
  5. LISINOPRIL [Concomitant]
     Active Substance: LISINOPRIL
  6. METAMUCIL [Concomitant]
     Active Substance: PLANTAGO SEED
  7. VITAMINS NOS [Concomitant]
     Active Substance: VITAMINS
  8. DIETARY SUPPLEMENT\HERBALS\MILK THISTLE [Concomitant]
     Active Substance: DIETARY SUPPLEMENT\HERBALS\MILK THISTLE
  9. BORON CITRATE [Concomitant]
  10. ZINC [Concomitant]
     Active Substance: ZINC
  11. CALCIUM [Concomitant]
     Active Substance: CALCIUM
  12. TEMAZEPAM [Concomitant]
     Active Substance: TEMAZEPAM

REACTIONS (1)
  - Fatigue [Recovering/Resolving]
